FAERS Safety Report 8501944-1 (Version None)
Quarter: 2012Q3

REPORT INFORMATION
  Report Type: 
  Country: None (occurrence: None)
  Receive Date: 20120711
  Receipt Date: 20120709
  Transmission Date: 20120928
  Serious: Yes (Death)
  Sender: FDA-Public Use
  Company Number: PHHY2012NL058991

PATIENT
  Sex: Male

DRUGS (4)
  1. ZOMETA [Suspect]
     Indication: METASTASES TO LUNG
     Dosage: 4 MG, 100 ML 1X PER 21 DAYS
  2. ZOMETA [Suspect]
     Dosage: 4 MG, 100 ML 1X PER 21 DAYS
     Dates: start: 20120625
  3. ZOMETA [Suspect]
     Dosage: 4 MG, 100 ML 1X PER 21 DAYS
     Dates: start: 20110125
  4. ZOMETA [Suspect]
     Dosage: 4 MG, 100 ML 1X PER 21 DAYS
     Dates: start: 20120531

REACTIONS (1)
  - EUTHANASIA [None]
